FAERS Safety Report 5745207-6 (Version None)
Quarter: 2008Q2

REPORT INFORMATION
  Report Type: 
  Country: None (occurrence: None)
  Receive Date: 20080521
  Receipt Date: 20080515
  Transmission Date: 20081010
  Serious: Yes (Other)
  Sender: FDA-Public Use
  Company Number: A0716914A

PATIENT
  Age: 55 Year
  Sex: Female

DRUGS (4)
  1. LAMICTAL [Suspect]
     Route: 048
     Dates: start: 20071019, end: 20071024
  2. ARTHRITIS MEDICATION [Concomitant]
  3. TOLMETIN SODIUM [Concomitant]
  4. VALTREX [Concomitant]

REACTIONS (8)
  - ERYTHEMA [None]
  - FOREIGN BODY SENSATION IN EYES [None]
  - KERATOCONJUNCTIVITIS SICCA [None]
  - OCULAR HYPERAEMIA [None]
  - ORAL PAIN [None]
  - PAIN [None]
  - SCAR [None]
  - STEVENS-JOHNSON SYNDROME [None]
